FAERS Safety Report 16029568 (Version 1)
Quarter: 2019Q1

REPORT INFORMATION
  Report Type: Spontaneous
  Country: US (occurrence: US)
  Receive Date: 20190304
  Receipt Date: 20190304
  Transmission Date: 20190418
  Serious: No
  Sender: FDA-Public Use
  Company Number: US-IMPAX LABORATORIES, LLC-2018-IPXL-01646

PATIENT
  Sex: Male
  Weight: 125 kg

DRUGS (3)
  1. RYTARY [Suspect]
     Active Substance: CARBIDOPA\LEVODOPA
     Indication: PARKINSON^S DISEASE
     Dosage: 23.75/95 MG, TWO CAPSULES, TWO TIMES A DAY (BID)
     Route: 048
     Dates: start: 2016, end: 201805
  2. RYTARY [Suspect]
     Active Substance: CARBIDOPA\LEVODOPA
     Dosage: 36.25/145MG, TWO CAPSULES, THREE TIMES DAILY
     Route: 048
     Dates: start: 20180517, end: 2018
  3. RYTARY [Suspect]
     Active Substance: CARBIDOPA\LEVODOPA
     Dosage: 23.75/95 MG, TWO CAPSULES, TWICE DAILY
     Route: 048
     Dates: start: 2018

REACTIONS (4)
  - Vomiting [Unknown]
  - Nausea [Unknown]
  - Tremor [Recovering/Resolving]
  - Fatigue [Unknown]
